FAERS Safety Report 8118518-7 (Version None)
Quarter: 2012Q1

REPORT INFORMATION
  Report Type: 
  Country: None (occurrence: None)
  Receive Date: 20120201
  Receipt Date: 20120117
  Transmission Date: 20120608
  Serious: Yes (Hospitalization)
  Sender: FDA-Public Use
  Company Number: 16222598

PATIENT
  Age: 60 Year
  Sex: Male

DRUGS (28)
  1. LEUCOVORIN SODIUM [Suspect]
     Indication: GASTROINTESTINAL CANCER METASTATIC
     Dosage: 676 MILLIGRAM, IV
     Route: 042
     Dates: start: 20110831
  2. ZOPICLONE [Concomitant]
  3. VITAMIN A [Concomitant]
  4. LACTULOSE [Concomitant]
  5. COLACE (DOCUSATE SODIUM) [Concomitant]
  6. BRIVANIB ALANINATE [Suspect]
     Indication: GASTROINTESTINAL CANCER METASTATIC
     Dosage: 800 MILLIGRAM 1 DAY, ORAL
     Route: 048
     Dates: start: 20110831
  7. FLUOROURACIL [Suspect]
     Indication: GASTROINTESTINAL CANCER METASTATIC
     Dosage: 676 MILLIGRAM; IV
     Route: 042
     Dates: start: 20110831
  8. IBUPROFEN [Concomitant]
  9. ATIVAN [Concomitant]
  10. COENZYME Q10 [Concomitant]
  11. FERROUS GLUCONATE [Concomitant]
  12. TYLENOL ARTHRITIS (ACETAMINOPHEN) [Concomitant]
  13. OMEGA 3 FATTY ACID [Concomitant]
  14. VOTA,OM E [Concomitant]
  15. LIPLESS (CIPROFIBRATE) [Concomitant]
  16. MAXERAN (METOCLOPRAMIDE HCL) [Concomitant]
  17. OXYCODONE HCL [Concomitant]
  18. ONDANSETRON [Concomitant]
  19. IRINOTECAN HCL [Suspect]
     Indication: GASTROINTESTINAL CANCER METASTATIC
     Dosage: 304 MILLIGRAM, IV
     Route: 042
     Dates: start: 20110831
  20. MULTIVITAMINS (MULTIPLE VITAMINS) [Concomitant]
  21. ULTIMAG (MAGNESIUM CHLORIDE + ZINC OXIDE) [Concomitant]
  22. ASPIRIN [Concomitant]
  23. TEMAZEPAK (TEMAZEPAM) [Concomitant]
  24. SELENIUM [Concomitant]
  25. GRAPSEED EXTRACT [Concomitant]
  26. VITAMIN D [Concomitant]
  27. DECADRON [Concomitant]
  28. POLYETHYLENE GLYCOL [Concomitant]

REACTIONS (12)
  - HAEMOGLOBIN DECREASED [None]
  - HAEMOLYTIC ANAEMIA [None]
  - BILIARY FIBROSIS [None]
  - LETHARGY [None]
  - WHITE BLOOD CELL COUNT DECREASED [None]
  - BILIARY DILATATION [None]
  - FEBRILE NEUTROPENIA [None]
  - GASTROINTESTINAL ULCER [None]
  - CHOLANGITIS [None]
  - HEPATIC STEATOSIS [None]
  - HYPERBILIRUBINAEMIA [None]
  - GASTROINTESTINAL HAEMORRHAGE [None]
